FAERS Safety Report 7347339-8 (Version None)
Quarter: 2011Q1

REPORT INFORMATION
  Report Type: 
  Country: None (occurrence: None)
  Receive Date: 20110311
  Receipt Date: 20110302
  Transmission Date: 20110831
  Serious: Yes (Other)
  Sender: FDA-Public Use
  Company Number: US-ELI_LILLY_AND_COMPANY-US201103001128

PATIENT
  Age: 1 Day

DRUGS (1)
  1. CYMBALTA [Suspect]
     Dosage: UNK, UNKNOWN
     Route: 064

REACTIONS (2)
  - PREMATURE BABY [None]
  - DRUG EXPOSURE DURING PREGNANCY [None]
